FAERS Safety Report 7263296-7 (Version None)
Quarter: 2011Q1

REPORT INFORMATION
  Report Type: 
  Country: None (occurrence: None)
  Receive Date: 20110130
  Receipt Date: 20100917
  Transmission Date: 20110831
  Serious: No
  Sender: FDA-Public Use
  Company Number: US-ABBOTT-10P-163-0675830-00

PATIENT
  Sex: Female
  Weight: 63.56 kg

DRUGS (2)
  1. HUMIRA [Suspect]
     Indication: RHEUMATOID ARTHRITIS
     Dates: start: 20100913
  2. HUMIRA [Suspect]
     Dates: end: 20090101

REACTIONS (3)
  - PAIN [None]
  - TOOTH DISORDER [None]
  - SKIN INFECTION [None]
